FAERS Safety Report 9886040 (Version 1)
Quarter: 2014Q1

REPORT INFORMATION
  Report Type: Spontaneous
  Country: US (occurrence: None)
  Receive Date: 20140207
  Receipt Date: 20140207
  Transmission Date: 20141002
  Serious: No
  Sender: FDA-Public Use
  Company Number: None

PATIENT
  Sex: Female

DRUGS (1)
  1. SIMPONI 50MG [Suspect]
     Dosage: INJECT 50 MG (0.5 ML) UNDER THE SKIN ONCE MONTHLY

REACTIONS (2)
  - Nasopharyngitis [None]
  - Rash [None]
